FAERS Safety Report 8192107-0 (Version None)
Quarter: 2012Q1

REPORT INFORMATION
  Report Type: 
  Country: None (occurrence: None)
  Receive Date: 20120307
  Receipt Date: 20120305
  Transmission Date: 20120608
  Serious: Yes (Other)
  Sender: FDA-Public Use
  Company Number: JP-PFIZER INC-2012057668

PATIENT
  Sex: Female

DRUGS (2)
  1. LYRICA [Suspect]
     Indication: PAIN
     Dosage: 25 MG/DAY
     Dates: start: 20110309
  2. LYRICA [Suspect]
     Dosage: 75 MG/DAY
     Dates: start: 20110501

REACTIONS (3)
  - FALL [None]
  - SPINAL COMPRESSION FRACTURE [None]
  - PAIN [None]
